FAERS Safety Report 6299374-9 (Version None)
Quarter: 2009Q3

REPORT INFORMATION
  Report Type: 
  Country: None (occurrence: None)
  Receive Date: 20090806
  Receipt Date: 20090803
  Transmission Date: 20100115
  Serious: Yes (Death)
  Sender: FDA-Public Use
  Company Number: MX-JNJFOC-20090801295

PATIENT
  Age: 32 Year
  Sex: Female

DRUGS (3)
  1. INVEGA [Suspect]
     Indication: SCHIZOPHRENIA, PARANOID TYPE
     Route: 048
  2. QUETIAPINE FUMARATE [Concomitant]
     Indication: SCHIZOPHRENIA, PARANOID TYPE
  3. FLUOXETINE W/OLANZAPINE [Concomitant]
     Indication: SCHIZOPHRENIA, PARANOID TYPE

REACTIONS (1)
  - COMPLETED SUICIDE [None]
